FAERS Safety Report 7647099-7 (Version None)
Quarter: 2011Q3

REPORT INFORMATION
  Report Type: 
  Country: None (occurrence: None)
  Receive Date: 20110711
  Receipt Date: 20110317
  Transmission Date: 20111222
  Serious: Yes (Other)
  Sender: FDA-Public Use
  Company Number: IPC201103-000340

PATIENT

DRUGS (2)
  1. METOCLOPRAMIDE HYDROCHLORIDE [Suspect]
     Dosage: ORAL
     Route: 048
     Dates: start: 20090401, end: 20090701
  2. REGLAN [Suspect]
     Dosage: ORAL
     Route: 048
     Dates: start: 20090401, end: 20090701

REACTIONS (9)
  - EXTRAPYRAMIDAL DISORDER [None]
  - BRADYKINESIA [None]
  - DYSKINESIA [None]
  - TREMOR [None]
  - PARKINSON'S DISEASE [None]
  - AKATHISIA [None]
  - GAIT DISTURBANCE [None]
  - TARDIVE DYSKINESIA [None]
  - NEUROLEPTIC MALIGNANT SYNDROME [None]
